FAERS Safety Report 25232790 (Version 1)
Quarter: 2025Q2

REPORT INFORMATION
  Report Type: Report from Study
  Country: US (occurrence: US)
  Receive Date: 20250424
  Receipt Date: 20250424
  Transmission Date: 20250717
  Serious: Yes (Other)
  Sender: ALEXION PHARMACEUTICALS
  Company Number: US-AstraZeneca-CH-00853159A

PATIENT
  Weight: 57.606 kg

DRUGS (1)
  1. OLAPARIB [Suspect]
     Active Substance: OLAPARIB
     Indication: Breast cancer female

REACTIONS (7)
  - Thrombosis [Unknown]
  - Blood viscosity increased [Unknown]
  - Dizziness [Unknown]
  - Blood cholesterol increased [Unknown]
  - Vitamin B12 deficiency [Unknown]
  - White blood cell count decreased [Unknown]
  - Red blood cell count increased [Unknown]
